FAERS Safety Report 9874861 (Version 1)
Quarter: 2014Q1

REPORT INFORMATION
  Report Type: Other
  Country: US (occurrence: US)
  Receive Date: 20140206
  Receipt Date: 20140206
  Transmission Date: 20141002
  Serious: No
  Sender: FDA-Public Use
  Company Number: US-ACORDA-ACO_36010_2013

PATIENT
  Sex: Female

DRUGS (2)
  1. AMPYRA [Suspect]
     Indication: PRODUCT USED FOR UNKNOWN INDICATION
     Dosage: 10 MG, BID
     Route: 065
     Dates: start: 20121105
  2. REBIF [Concomitant]
     Indication: PRODUCT USED FOR UNKNOWN INDICATION
     Dosage: 44 MCG 3XWEEK
     Route: 058

REACTIONS (5)
  - Vision blurred [Unknown]
  - Hemiparesis [Unknown]
  - Gait disturbance [Unknown]
  - Nasopharyngitis [Unknown]
  - Multiple sclerosis relapse [Unknown]
